FAERS Safety Report 13401634 (Version 1)
Quarter: 2017Q2

REPORT INFORMATION
  Report Type: Report from Study
  Country: RO (occurrence: RO)
  Receive Date: 20170404
  Receipt Date: 20170404
  Transmission Date: 20170830
  Serious: Yes (Death, Other)
  Sender: FDA-Public Use
  Company Number: RO-TOLMAR, INC.-2017RO003999

PATIENT
  Age: 78 Year
  Sex: Male
  Weight: 78 kg

DRUGS (3)
  1. ELIGARD [Suspect]
     Active Substance: LEUPROLIDE ACETATE
     Indication: PROSTATE CANCER
     Dosage: 45 MG, EVERY 6 MONTHS
     Route: 058
     Dates: start: 20150505, end: 20150505
  2. DIPHERELINE [Concomitant]
     Dosage: UNK
     Route: 065
     Dates: start: 20150210, end: 20150505
  3. CASODEX [Concomitant]
     Active Substance: BICALUTAMIDE
     Dosage: UNK
     Route: 065
     Dates: start: 20150127, end: 20150527

REACTIONS (3)
  - Fat embolism [Unknown]
  - Death [Fatal]
  - Limb amputation [Recovered/Resolved with Sequelae]
